FAERS Safety Report 7819025-9 (Version None)
Quarter: 2011Q4

REPORT INFORMATION
  Report Type: 
  Country: None (occurrence: None)
  Receive Date: 20111012
  Receipt Date: 20110930
  Transmission Date: 20120403
  Serious: Yes (Hospitalization, Other)
  Sender: FDA-Public Use
  Company Number: AUR-APL-2009-00438

PATIENT
  Age: 84 Year
  Sex: Female

DRUGS (6)
  1. ARICEPT [Suspect]
     Indication: PRODUCT USED FOR UNKNOWN INDICATION
  2. FISH OIL (FISH OIL) [Suspect]
     Indication: PRODUCT USED FOR UNKNOWN INDICATION
  3. CALCIUM CARBONATE [Suspect]
     Indication: PRODUCT USED FOR UNKNOWN INDICATION
  4. GLYBURIDE [Suspect]
     Indication: PRODUCT USED FOR UNKNOWN INDICATION
  5. VIOXX [Suspect]
     Indication: PRODUCT USED FOR UNKNOWN INDICATION
  6. FOSAMAX [Suspect]
     Indication: PRODUCT USED FOR UNKNOWN INDICATION

REACTIONS (7)
  - TYPHOID FEVER [None]
  - PULMONARY EMBOLISM [None]
  - DRUG DOSE OMISSION [None]
  - ABNORMAL BEHAVIOUR [None]
  - ANAEMIA [None]
  - THROMBOSIS [None]
  - BLOOD GLUCOSE FLUCTUATION [None]
